FAERS Safety Report 9854029 (Version 1)
Quarter: 2014Q1

REPORT INFORMATION
  Report Type: Report from Study
  Country: CZ (occurrence: CZ)
  Receive Date: 20140129
  Receipt Date: 20140129
  Transmission Date: 20141002
  Serious: Yes (Hospitalization)
  Sender: FDA-Public Use
  Company Number: CZ-ABBVIE-14P-217-1193319-00

PATIENT
  Age: 55 Year
  Sex: Female

DRUGS (5)
  1. HUMIRA [Suspect]
     Indication: RHEUMATOID ARTHRITIS
     Route: 058
     Dates: start: 20120215
  2. METOJECT [Concomitant]
     Indication: PRODUCT USED FOR UNKNOWN INDICATION
  3. PLAQUENIL (HYDROCHLOROCHIN) [Concomitant]
     Indication: PRODUCT USED FOR UNKNOWN INDICATION
  4. ACIDUM FOLLICUM [Concomitant]
     Indication: PRODUCT USED FOR UNKNOWN INDICATION
  5. DORETA [Concomitant]
     Indication: PRODUCT USED FOR UNKNOWN INDICATION
     Dosage: 75/650AS NEEDED

REACTIONS (5)
  - Stomatitis [Recovered/Resolved]
  - Oesophagitis [Recovered/Resolved]
  - Bronchopneumonia [Recovered/Resolved]
  - Candida infection [Recovered/Resolved]
  - Pyrexia [Recovered/Resolved]
